FAERS Safety Report 9697086 (Version 1)
Quarter: 2013Q4

REPORT INFORMATION
  Report Type: Spontaneous
  Country: AU (occurrence: AU)
  Receive Date: 20131120
  Receipt Date: 20131120
  Transmission Date: 20140711
  Serious: Yes (Disabling)
  Sender: FDA-Public Use
  Company Number: AU-009507513-1311AUS006090

PATIENT
  Sex: Female
  Weight: 95 kg

DRUGS (1)
  1. SIMVASTATIN [Suspect]
     Indication: METABOLIC DISORDER
     Dosage: 20 MG, DAILY
     Route: 048
     Dates: start: 20090604, end: 20130417

REACTIONS (4)
  - Pain [Not Recovered/Not Resolved]
  - Incontinence [Not Recovered/Not Resolved]
  - Muscular weakness [Not Recovered/Not Resolved]
  - Diarrhoea [Not Recovered/Not Resolved]
